FAERS Safety Report 6956910-4 (Version None)
Quarter: 2010Q3

REPORT INFORMATION
  Report Type: 
  Country: None (occurrence: None)
  Receive Date: 20100826
  Receipt Date: 20100811
  Transmission Date: 20110219
  Serious: Yes (Death)
  Sender: FDA-Public Use
  Company Number: AE 2010-200

PATIENT
  Age: 65 Year
  Sex: Female

DRUGS (3)
  1. FAZACLO ODT [Suspect]
     Dosage: 350MG DAILY PO
     Route: 048
     Dates: start: 20080627, end: 20100719
  2. BENADRYL [Concomitant]
  3. HALDOL [Concomitant]

REACTIONS (1)
  - DEATH [None]
